FAERS Safety Report 21776028 (Version 2)
Quarter: 2024Q4

REPORT INFORMATION
  Report Type: Spontaneous
  Country: US (occurrence: US)
  Receive Date: 20221226
  Receipt Date: 20241226
  Transmission Date: 20250114
  Serious: Yes (Other)
  Sender: SANOFI AVENTIS
  Company Number: US-SA-SAC20221222000779

PATIENT
  Age: 65 Year
  Sex: Male

DRUGS (17)
  1. DUPIXENT [Suspect]
     Active Substance: DUPILUMAB
     Indication: Dermatitis atopic
     Dosage: 300 MG, QOW
     Route: 058
  2. ASPIRIN [Concomitant]
     Active Substance: ASPIRIN
  3. GABAPENTIN [Concomitant]
     Active Substance: GABAPENTIN
  4. HYDROCODONE [Concomitant]
     Active Substance: HYDROCODONE
  5. INSULIN LISPRO [Concomitant]
     Active Substance: INSULIN LISPRO
  6. IBUPROFEN [Concomitant]
     Active Substance: IBUPROFEN
  7. VALSARTAN [Concomitant]
     Active Substance: VALSARTAN
  8. LANTUS SOLOSTAR [Concomitant]
     Active Substance: INSULIN GLARGINE
  9. CETIRIZINE HCL [Concomitant]
     Active Substance: CETIRIZINE HYDROCHLORIDE
  10. AMLODIPINE BESYLATE\BENAZEPRIL HYDROCHLORIDE [Concomitant]
     Active Substance: AMLODIPINE BESYLATE\BENAZEPRIL HYDROCHLORIDE
  11. PANTOPRAZOLE [Concomitant]
     Active Substance: PANTOPRAZOLE
  12. OZEMPIC [Concomitant]
     Active Substance: SEMAGLUTIDE
  13. METOPROLOL SUCCINATE [Concomitant]
     Active Substance: METOPROLOL SUCCINATE
  14. LINZESS [Concomitant]
     Active Substance: LINACLOTIDE
  15. CARBAMAZEPINE [Concomitant]
     Active Substance: CARBAMAZEPINE
  16. ATORVASTATIN [Concomitant]
     Active Substance: ATORVASTATIN
  17. TRULICITY [Concomitant]
     Active Substance: DULAGLUTIDE

REACTIONS (10)
  - Coronary artery bypass [Unknown]
  - Asthenia [Unknown]
  - Fatigue [Unknown]
  - Dermatitis atopic [Not Recovered/Not Resolved]
  - Pruritus [Not Recovered/Not Resolved]
  - Skin haemorrhage [Not Recovered/Not Resolved]
  - Skin weeping [Not Recovered/Not Resolved]
  - Skin exfoliation [Not Recovered/Not Resolved]
  - Dry skin [Not Recovered/Not Resolved]
  - Skin fissures [Not Recovered/Not Resolved]

NARRATIVE: CASE EVENT DATE: 20211219
